FAERS Safety Report 11884495 (Version 1)
Quarter: 2015Q4

REPORT INFORMATION
  Report Type: Spontaneous
  Country: US (occurrence: None)
  Receive Date: 20151231
  Receipt Date: 20151231
  Transmission Date: 20160305
  Serious: No
  Sender: FDA-Public Use
  Company Number: None

PATIENT
  Age: 63 Year
  Sex: Male
  Weight: 111 kg

DRUGS (1)
  1. WARFARIN 5MG DAILY UNKNOWN [Suspect]
     Active Substance: WARFARIN
     Indication: ANTICOAGULANT THERAPY
     Route: 048

REACTIONS (2)
  - International normalised ratio decreased [None]
  - Cerebral artery embolism [None]

NARRATIVE: CASE EVENT DATE: 20151108
